FAERS Safety Report 6100419-7 (Version None)
Quarter: 2009Q1

REPORT INFORMATION
  Report Type: 
  Country: None (occurrence: None)
  Receive Date: 20090226
  Receipt Date: 20090206
  Transmission Date: 20090719
  Serious: Yes (Hospitalization, Other)
  Sender: FDA-Public Use
  Company Number: US200711006123

PATIENT
  Age: 43 Year
  Sex: Male
  Weight: 83 kg

DRUGS (28)
  1. CYMBALTA [Suspect]
     Indication: BACK PAIN
     Dosage: SEE IMAGE
     Dates: start: 20050412, end: 20050601
  2. CYMBALTA [Suspect]
     Indication: BACK PAIN
     Dosage: SEE IMAGE
     Dates: start: 20060101, end: 20060101
  3. CYMBALTA [Suspect]
     Indication: BACK PAIN
     Dosage: SEE IMAGE
     Dates: start: 20060101, end: 20060101
  4. CYMBALTA [Suspect]
     Indication: BACK PAIN
     Dosage: SEE IMAGE
     Dates: start: 20060601, end: 20060601
  5. CYMBALTA [Suspect]
     Indication: BACK PAIN
     Dosage: SEE IMAGE
     Dates: start: 20050602
  6. CYMBALTA [Suspect]
     Indication: BACK PAIN
     Dosage: SEE IMAGE
     Dates: start: 20060601
  7. PROZAC [Suspect]
  8. HYDROMORPHONE HCL [Concomitant]
  9. PROTONIX [Concomitant]
  10. NEURONTIN [Concomitant]
  11. REQUIP [Concomitant]
  12. CLONAZEPAM [Concomitant]
  13. OXYCODONE AND ACETAMINOPHEN [Concomitant]
  14. MIRAPEX [Concomitant]
  15. ASPIRIN [Concomitant]
  16. ZOVIRAX [Concomitant]
  17. NUBAIN [Concomitant]
  18. PHENERGAN HCL [Concomitant]
  19. TORADOL [Concomitant]
  20. LUNESTA [Concomitant]
  21. ROCEPHIN [Concomitant]
  22. AMBIEN [Concomitant]
  23. TRAZODONE HCL [Concomitant]
  24. TYLENOL /SCH/ (PARACETAMOL) [Concomitant]
  25. NORMODYNE [Concomitant]
  26. MOTRIN [Concomitant]
  27. FOLGARD (CYANOCOBALAMIN, FOLIC ACID, PYRIDOXINE HYDROCHLORIDE, RIBOFLA [Concomitant]
  28. LIDODERM [Concomitant]

REACTIONS (59)
  - ABASIA [None]
  - ABDOMINAL PAIN UPPER [None]
  - AGGRESSION [None]
  - AGITATION [None]
  - BLOOD CHLORIDE INCREASED [None]
  - BLOOD HOMOCYSTEINE INCREASED [None]
  - BLOOD PRESSURE INCREASED [None]
  - CARDIOMEGALY [None]
  - CHEST PAIN [None]
  - COLD SWEAT [None]
  - COMPLEX PARTIAL SEIZURES [None]
  - DELIRIUM [None]
  - DEPRESSION [None]
  - DIABETES MELLITUS [None]
  - DIPLOPIA [None]
  - DIZZINESS [None]
  - DRUG WITHDRAWAL SYNDROME [None]
  - DYSLIPIDAEMIA [None]
  - DYSPNOEA [None]
  - EJECTION FRACTION DECREASED [None]
  - EPISTAXIS [None]
  - ERYTHEMA [None]
  - EYE PAIN [None]
  - FALL [None]
  - FORMICATION [None]
  - GALLBLADDER DISORDER [None]
  - GRAND MAL CONVULSION [None]
  - HAEMATEMESIS [None]
  - HEADACHE [None]
  - HEPATIC ENCEPHALOPATHY [None]
  - HEPATIC STEATOSIS [None]
  - HEPATOTOXICITY [None]
  - HIATUS HERNIA [None]
  - HOT FLUSH [None]
  - HYPERAMMONAEMIA [None]
  - HYPERHIDROSIS [None]
  - HYPERHOMOCYSTEINAEMIA [None]
  - HYPERTENSION [None]
  - HYPOKALAEMIA [None]
  - IMPAIRED WORK ABILITY [None]
  - INCREASED UPPER AIRWAY SECRETION [None]
  - INSOMNIA [None]
  - INTERVERTEBRAL DISC PROTRUSION [None]
  - LIMB INJURY [None]
  - MICTURITION URGENCY [None]
  - MOOD SWINGS [None]
  - MOVEMENT DISORDER [None]
  - MUSCLE SPASMS [None]
  - NASAL CONGESTION [None]
  - NASOPHARYNGITIS [None]
  - NEUROPATHY PERIPHERAL [None]
  - POSTICTAL PARALYSIS [None]
  - PRESYNCOPE [None]
  - SINUSITIS [None]
  - SOMNOLENCE [None]
  - SUICIDAL IDEATION [None]
  - SYNCOPE [None]
  - TINNITUS [None]
  - TRANSIENT ISCHAEMIC ATTACK [None]
